FAERS Safety Report 9511671 (Version 1)
Quarter: 2013Q3

REPORT INFORMATION
  Report Type: Spontaneous
  Country: AU (occurrence: None)
  Receive Date: 20130906
  Receipt Date: 20130906
  Transmission Date: 20140515
  Serious: Yes (Life-Threatening, Hospitalization)
  Sender: FDA-Public Use
  Company Number: AUR-APL-2013-07222

PATIENT
  Age: 73 Year
  Sex: 0

DRUGS (3)
  1. SIMVASTATIN (SIMVASTATIN) [Suspect]
     Indication: PRODUCT USED FOR UNKNOWN INDICATION
     Dates: end: 20130108
  2. AMIODARONE HYDROCHLORIDE (AMIODARONE HYDROCHLORIDE) [Suspect]
     Dosage: 100 MG (200 MG, 1 IN 2 D), UNKNOWN
     Dates: end: 20130108
  3. KETOCONAZOLE (KETOCONAZOLE) [Suspect]
     Dates: start: 20121115, end: 20130108

REACTIONS (2)
  - Myositis [None]
  - Fungal infection [None]
